APPROVED DRUG PRODUCT: IZERVAY
Active Ingredient: AVACINCAPTAD PEGOL SODIUM
Strength: EQ 2MG BASE/0.1ML (EQ 2MG BASE/0.1ML)
Dosage Form/Route: SOLUTION;INTRAVITREAL
Application: N217225 | Product #001
Applicant: ASTELLAS PHARMA US INC
Approved: Aug 4, 2023 | RLD: Yes | RS: Yes | Type: RX

PATENTS:
Patent 11491176 | Expires: Jul 11, 2034
Patent 11273171 | Expires: Jul 11, 2034
Patent 9617546 | Expires: Feb 14, 2027
Patent 8236773 | Expires: Nov 11, 2026
Patent 12016875 | Expires: Jul 11, 2034
Patent 7579456 | Expires: Feb 14, 2027